FAERS Safety Report 19818238 (Version 1)
Quarter: 2021Q3

REPORT INFORMATION
  Report Type: Spontaneous
  Country: CA (occurrence: CA)
  Receive Date: 20210911
  Receipt Date: 20210911
  Transmission Date: 20211014
  Serious: Yes (Life-Threatening, Hospitalization, Other)
  Sender: FDA-Public Use
  Company Number: CA-TEVA-2021-CA-1949500

PATIENT
  Age: 9 Year
  Sex: Female
  Weight: 21 kg

DRUGS (18)
  1. POLYETHYLENE GLYCOL [Concomitant]
     Active Substance: POLYETHYLENE GLYCOLS
  2. DIMENHYDRINATE. [Concomitant]
     Active Substance: DIMENHYDRINATE
  3. HYDROCORTISONE. [Concomitant]
     Active Substance: HYDROCORTISONE
  4. DESMOPRESSIN [Concomitant]
     Active Substance: DESMOPRESSIN
  5. DEXMEDETOMIDINE. [Concomitant]
     Active Substance: DEXMEDETOMIDINE
  6. FILGRASTIM [Concomitant]
     Active Substance: FILGRASTIM
  7. PROPOFOL. [Concomitant]
     Active Substance: PROPOFOL
  8. VANCOMYCIN [Concomitant]
     Active Substance: VANCOMYCIN
  9. LEVOTHYROXINE. [Concomitant]
     Active Substance: LEVOTHYROXINE
  10. ONDANSETRON [Concomitant]
     Active Substance: ONDANSETRON
  11. TRIMETHOPRIM SULFAMETHOXAZOLE [Concomitant]
     Active Substance: SULFAMETHOXAZOLE\TRIMETHOPRIM
  12. CEFAZOLIN [Concomitant]
     Active Substance: CEFAZOLIN
  13. CEFTAZIDIME. [Concomitant]
     Active Substance: CEFTAZIDIME
  14. ETOPOSIDE. [Suspect]
     Active Substance: ETOPOSIDE
     Indication: GERM CELL CANCER
     Route: 042
  15. ACETAMINOPHEN. [Concomitant]
     Active Substance: ACETAMINOPHEN
  16. DEXAMETHASONE. [Concomitant]
     Active Substance: DEXAMETHASONE
  17. LACTULOSE SYRUP [Concomitant]
     Active Substance: LACTULOSE
  18. CARBOPLATIN. [Suspect]
     Active Substance: CARBOPLATIN
     Indication: GERM CELL CANCER
     Route: 042

REACTIONS (1)
  - Aplastic anaemia [Recovered/Resolved]
